FAERS Safety Report 14308675 (Version 1)
Quarter: 2017Q4

REPORT INFORMATION
  Report Type: Spontaneous
  Country: US (occurrence: US)
  Receive Date: 20171220
  Receipt Date: 20171220
  Transmission Date: 20180321
  Serious: No
  Sender: FDA-Public Use
  Company Number: US-PFIZER INC-2017536444

PATIENT
  Age: 48 Year
  Sex: Female

DRUGS (2)
  1. GENOTROPIN [Suspect]
     Active Substance: SOMATROPIN
     Dosage: 2 MG, UNK
  2. GENOTROPIN [Suspect]
     Active Substance: SOMATROPIN
     Dosage: 2 MG, UNK

REACTIONS (10)
  - Pain [Unknown]
  - Reaction to excipient [Unknown]
  - Alopecia [Unknown]
  - Intentional product misuse [Unknown]
  - Nausea [Unknown]
  - Temperature intolerance [Unknown]
  - Weight decreased [Unknown]
  - Dyspnoea [Unknown]
  - Rash [Unknown]
  - Dry skin [Unknown]
